FAERS Safety Report 6412901-3 (Version None)
Quarter: 2009Q4

REPORT INFORMATION
  Report Type: 
  Country: None (occurrence: None)
  Receive Date: 20091023
  Receipt Date: 20090515
  Transmission Date: 20100525
  Serious: Yes (Death)
  Sender: FDA-Public Use
  Company Number: PHEH2009US11827

PATIENT
  Sex: Female
  Weight: 46 kg

DRUGS (6)
  1. EXJADE [Suspect]
     Indication: MYELODYSPLASTIC SYNDROME
     Dosage: 500 MG/ 2 X DAY
     Route: 048
     Dates: start: 20060501
  2. OXYCODONE [Concomitant]
     Dosage: UNK
     Route: 048
  3. ACETAMINOPHEN [Concomitant]
     Dosage: UNK
     Route: 048
  4. EVISTA [Concomitant]
     Dosage: UNK
     Route: 048
  5. MEGACE [Concomitant]
     Dosage: UNK
     Route: 048
  6. METOPROLOL [Concomitant]
     Dosage: UNK
     Route: 048

REACTIONS (1)
  - DEATH [None]
